FAERS Safety Report 4725075-1 (Version None)
Quarter: 2005Q3

REPORT INFORMATION
  Report Type: 
  Country: None (occurrence: None)
  Receive Date: 20050721
  Receipt Date: 20050704
  Transmission Date: 20060218
  Serious: Yes (Life-Threatening, Other)
  Sender: FDA-Public Use
  Company Number: CA_050307816

PATIENT
  Age: 81 Year
  Sex: Female
  Weight: 57 kg

DRUGS (18)
  1. FORTEO [Suspect]
     Indication: OSTEOPOROSIS
     Dosage: 20 UG DAY
     Dates: start: 20050212
  2. LAKOTA [Concomitant]
  3. FOSAMAX [Concomitant]
  4. PMS-METOPROLOL-L (METOPROLOL TARTRATE) [Concomitant]
  5. SIMVASTATIN [Concomitant]
  6. PLAVIX [Concomitant]
  7. ALTACE (RAMIPRIL 00885601/) [Concomitant]
  8. PMS-GABAPENTIN (GABAPENTIN) [Concomitant]
  9. DICLOFENAC SODIUM [Concomitant]
  10. APO-FUROSEMIDE (FUROSEMIDE /00032601/) [Concomitant]
  11. ACETYLSALICYLIC ACID SRT [Concomitant]
  12. LOCACORTEN-VIOFORM [Concomitant]
  13. CALCIUM GLUCONATE [Concomitant]
  14. VITAMIN D [Concomitant]
  15. RENEDIL (FELODIPINE) [Concomitant]
  16. METOPROLOL [Concomitant]
  17. ACETYLSALICYLIC ACID SRT [Concomitant]
  18. TYLENOL [Concomitant]

REACTIONS (5)
  - DIZZINESS [None]
  - HEADACHE [None]
  - PLATELET COUNT DECREASED [None]
  - VOMITING [None]
  - WHITE BLOOD CELL COUNT DECREASED [None]
